FAERS Safety Report 8365587-5 (Version None)
Quarter: 2012Q2

REPORT INFORMATION
  Report Type: 
  Country: None (occurrence: None)
  Receive Date: 20120516
  Receipt Date: 20120508
  Transmission Date: 20120825
  Serious: Yes (Hospitalization)
  Sender: FDA-Public Use
  Company Number: US-MERCK-1112USA03026

PATIENT
  Age: 60 Year
  Sex: Female

DRUGS (5)
  1. FOSAMAX [Suspect]
     Route: 048
     Dates: start: 19990401
  2. FOSAMAX [Suspect]
     Route: 048
     Dates: start: 19990401
  3. FOSAMAX [Suspect]
     Indication: OSTEOPOROSIS
     Route: 048
     Dates: start: 20090101, end: 20100701
  4. FOSAMAX [Suspect]
     Indication: OSTEOPENIA
     Route: 048
     Dates: start: 20090101, end: 20100701
  5. FOSAMAX [Suspect]
     Route: 048
     Dates: start: 20090201

REACTIONS (24)
  - RADICULOPATHY [None]
  - CHONDROCALCINOSIS [None]
  - HYPONATRAEMIA [None]
  - MENTAL STATUS CHANGES [None]
  - OSTEOCHONDRITIS [None]
  - ORAL SURGERY [None]
  - MEDIASTINAL SHIFT [None]
  - LUNG DISORDER [None]
  - CHRONIC OBSTRUCTIVE PULMONARY DISEASE [None]
  - LIVER DISORDER [None]
  - JOINT DISLOCATION [None]
  - URINARY TRACT INFECTION PSEUDOMONAL [None]
  - MYCOBACTERIAL INFECTION [None]
  - EXOSTOSIS [None]
  - RIB FRACTURE [None]
  - PATELLA FRACTURE [None]
  - FEMORAL NECK FRACTURE [None]
  - CHRONIC RESPIRATORY DISEASE [None]
  - RHEUMATOID ARTHRITIS [None]
  - PULMONARY CALCIFICATION [None]
  - INTERVERTEBRAL DISC PROTRUSION [None]
  - ASTHENIA [None]
  - OSTEOARTHRITIS [None]
  - INTERVERTEBRAL DISC DEGENERATION [None]
